FAERS Safety Report 8460030-X (Version None)
Quarter: 2012Q2

REPORT INFORMATION
  Report Type: 
  Country: None (occurrence: None)
  Receive Date: 20120622
  Receipt Date: 20120619
  Transmission Date: 20120825
  Serious: Yes (Hospitalization)
  Sender: FDA-Public Use
  Company Number: PHHY2012US052540

PATIENT
  Age: 58 Year
  Sex: Male

DRUGS (16)
  1. LISINOPRIL [Concomitant]
     Dosage: 20 MG, QD
  2. HYDRALAZINE HYDROCHLORIDE [Concomitant]
     Dosage: 50 MG, TID
  3. PAROXETINE [Concomitant]
     Dosage: 20 MG, QD
  4. POTASSIUM CHLORIDE [Concomitant]
  5. WARFARIN SODIUM [Concomitant]
     Dosage: 5 MG, QD
  6. DRONEDARONE HCL [Suspect]
     Indication: ATRIAL FIBRILLATION
     Dosage: 400 MG, BID
  7. LEVOTHYROXINE [Concomitant]
     Dosage: 50 UG, QD
  8. ALLOPURINOL [Concomitant]
     Dosage: 300 MG, QD
  9. ISOSORBIDE MONONITRATE [Concomitant]
     Dosage: 30 MG, QD
  10. ASPIRIN [Concomitant]
     Dosage: 81 MG, QD
  11. LOVASTATIN [Concomitant]
     Dosage: 40 MG, QD
  12. GUAIFENESIN [Concomitant]
     Dosage: 400 MG, QD
  13. VITAMIN A AND D [Concomitant]
  14. CARVEDILOL [Suspect]
     Dosage: 6.25 MG, QD
  15. TORSEMIDE [Concomitant]
     Dosage: 20 MG, QD
  16. OXYBUTYNIN [Concomitant]
     Dosage: 5 MG, BID

REACTIONS (7)
  - BRADYCARDIA [None]
  - DIZZINESS [None]
  - ELECTROCARDIOGRAM QT PROLONGED [None]
  - VENTRICULAR EXTRASYSTOLES [None]
  - CHEST PAIN [None]
  - SYNCOPE [None]
  - CONFUSIONAL STATE [None]
